FAERS Safety Report 25050724 (Version 1)
Quarter: 2025Q1

REPORT INFORMATION
  Report Type: Spontaneous
  Country: US (occurrence: None)
  Receive Date: 20250304
  Receipt Date: 20250304
  Transmission Date: 20250408
  Serious: No
  Sender: FDA-CTU
  Company Number: None

PATIENT

DRUGS (2)
  1. CLARITIN [Suspect]
     Active Substance: LORATADINE
  2. THYQUIDITY [Suspect]
     Active Substance: LEVOTHYROXINE SODIUM

REACTIONS (2)
  - Product taste abnormal [None]
  - Vomiting [None]
